FAERS Safety Report 7753095-1 (Version None)
Quarter: 2011Q3

REPORT INFORMATION
  Report Type: 
  Country: None (occurrence: None)
  Receive Date: 20110913
  Receipt Date: 20110830
  Transmission Date: 20111222
  Serious: Yes (Hospitalization, Other)
  Sender: FDA-Public Use
  Company Number: 2011MA012750

PATIENT
  Age: 46 Year
  Sex: Female

DRUGS (1)
  1. ZOLPIDEM TARTRATE [Suspect]
     Dosage: 400 MG;QD;UNK

REACTIONS (11)
  - DELIRIUM [None]
  - SINUS TACHYCARDIA [None]
  - PSYCHOTIC BEHAVIOUR [None]
  - GRAND MAL CONVULSION [None]
  - HALLUCINATION, VISUAL [None]
  - MUSCLE TWITCHING [None]
  - DYSKINESIA [None]
  - DYSARTHRIA [None]
  - PROTRUSION TONGUE [None]
  - DRUG WITHDRAWAL SYNDROME [None]
  - ABNORMAL BEHAVIOUR [None]
